FAERS Safety Report 6278256-2 (Version None)
Quarter: 2009Q3

REPORT INFORMATION
  Report Type: 
  Country: None (occurrence: None)
  Receive Date: 20090722
  Receipt Date: 20090713
  Transmission Date: 20100115
  Serious: Yes (Hospitalization, Other)
  Sender: FDA-Public Use
  Company Number: BR-ABBOTT-09P-020-0584991-00

PATIENT
  Sex: Male
  Weight: 58 kg

DRUGS (8)
  1. HUMIRA [Suspect]
     Indication: CROHN'S DISEASE
     Dosage: RECEIVED 2 DOSES
     Route: 058
     Dates: start: 20081105, end: 20081106
  2. HUMIRA [Suspect]
  3. TORVAL [Concomitant]
     Indication: EPILEPSY
     Route: 048
     Dates: start: 20080701
  4. METRONIDAZOLE [Concomitant]
     Indication: CROHN'S DISEASE
     Route: 048
     Dates: end: 20090522
  5. PREDNISONE TAB [Concomitant]
     Indication: CROHN'S DISEASE
     Route: 048
     Dates: end: 20090522
  6. MESALAZINE [Concomitant]
     Indication: CROHN'S DISEASE
     Route: 048
  7. COUMADIN [Concomitant]
     Indication: THROMBOSIS
     Dosage: 10MG OR 12MG WEEKLY
     Route: 048
  8. FRISIUM [Concomitant]
     Indication: EPILEPSY
     Route: 048
     Dates: start: 20090401

REACTIONS (5)
  - ANAEMIA [None]
  - HEPATIC FAILURE [None]
  - INTESTINAL FISTULA INFECTION [None]
  - NEUROPATHY PERIPHERAL [None]
  - SEPSIS [None]
